FAERS Safety Report 10015955 (Version 2)
Quarter: 2014Q1

REPORT INFORMATION
  Report Type: Report from Study
  Country: RO (occurrence: RO)
  Receive Date: 20140317
  Receipt Date: 20140318
  Transmission Date: 20141002
  Serious: Yes (Other)
  Sender: FDA-Public Use
  Company Number: RO-PFIZER INC-2014076264

PATIENT
  Sex: 0

DRUGS (2)
  1. METHYLPREDNISOLONE SODIUM SUCCINATE [Suspect]
     Indication: RHEUMATOID ARTHRITIS
     Dosage: 125 MG DAILY, THREE CONSECUTIVE DAYS
     Route: 042
  2. NORMAL SALINE [Concomitant]
     Dosage: 250 ML,  THREE CONSECUTIVE DAYS
     Route: 042

REACTIONS (1)
  - Bradycardia [Recovered/Resolved]
